FAERS Safety Report 9848728 (Version 1)
Quarter: 2014Q1

REPORT INFORMATION
  Report Type: Spontaneous
  Country: US (occurrence: US)
  Receive Date: 20140128
  Receipt Date: 20140128
  Transmission Date: 20141002
  Serious: No
  Sender: FDA-Public Use
  Company Number: US-BAYER-2014-014057

PATIENT
  Age: 79 Year
  Sex: Male
  Weight: 82.99 kg

DRUGS (3)
  1. ALEVE CAPLET [Suspect]
     Indication: PROSTATE CANCER
     Dosage: 2 DF, BID
     Route: 048
  2. ALEVE CAPLET [Suspect]
     Indication: RADIATION INJURY
     Dosage: 2 DF, BID
     Route: 048
  3. FLOMAX (MORNIFLUMATE) [Concomitant]

REACTIONS (3)
  - Therapeutic response unexpected [None]
  - Off label use [None]
  - Extra dose administered [None]
